FAERS Safety Report 10476451 (Version 3)
Quarter: 2014Q4

REPORT INFORMATION
  Report Type: Spontaneous
  Country: US (occurrence: None)
  Receive Date: 20140923
  Receipt Date: 20141112
  Transmission Date: 20150528
  Serious: Yes (Other)
  Sender: FDA-Public Use
  Company Number: US-017105

PATIENT
  Age: 56 Year
  Sex: Female
  Weight: 5.44 kg

DRUGS (12)
  1. FLUDROCORTISONE [Concomitant]
     Active Substance: FLUDROCORTISONE
  2. LORATADINE. [Concomitant]
     Active Substance: LORATADINE
  3. POTASSIUM [Concomitant]
     Active Substance: POTASSIUM
  4. SALBUTAMOL [Concomitant]
     Active Substance: ALBUTEROL
  5. CARAFATE [Concomitant]
     Active Substance: SUCRALFATE
  6. TOPIRAMATE. [Concomitant]
     Active Substance: TOPIRAMATE
  7. IRON [Concomitant]
     Active Substance: IRON
  8. LEVOTHYROXINE [Concomitant]
     Active Substance: LEVOTHYROXINE
  9. CALCIUM [Concomitant]
     Active Substance: CALCIUM
  10. EFFEXOR [Concomitant]
     Active Substance: VENLAFAXINE HYDROCHLORIDE
  11. DESMOPRESSIN ACETATE. [Suspect]
     Active Substance: DESMOPRESSIN ACETATE
     Indication: DIABETES INSIPIDUS
     Route: 048
     Dates: start: 2014, end: 20140831
  12. DEXILANT [Concomitant]
     Active Substance: DEXLANSOPRAZOLE

REACTIONS (8)
  - Angioedema [None]
  - Swelling face [None]
  - Dyspnoea [None]
  - Urine odour abnormal [None]
  - Pruritus [None]
  - Chromaturia [None]
  - Throat irritation [None]
  - Urine abnormality [None]

NARRATIVE: CASE EVENT DATE: 2014
